FAERS Safety Report 19230706 (Version 1)
Quarter: 2021Q2

REPORT INFORMATION
  Report Type: Spontaneous
  Country: US (occurrence: US)
  Receive Date: 20210507
  Receipt Date: 20210507
  Transmission Date: 20210717
  Serious: Yes (Other)
  Sender: FDA-Public Use
  Company Number: None

PATIENT
  Sex: Female

DRUGS (17)
  1. ANASTROZOLE. [Concomitant]
     Active Substance: ANASTROZOLE
  2. OXYCODONE AND ACETAMINOPHEN [Concomitant]
     Active Substance: ACETAMINOPHEN\OXYCODONE HYDROCHLORIDE
  3. BOTOX [Concomitant]
     Active Substance: ONABOTULINUMTOXINA
  4. LACTULOSE SOL [Concomitant]
  5. BOTOX [Concomitant]
     Active Substance: ONABOTULINUMTOXINA
  6. GABAPENTIN. [Concomitant]
     Active Substance: GABAPENTIN
  7. PROLIA [Suspect]
     Active Substance: DENOSUMAB
     Dosage: ?          OTHER FREQUENCY:Q6W;?
     Route: 058
  8. ANASTROZOLE. [Concomitant]
     Active Substance: ANASTROZOLE
  9. OXYCODONE AND ACETAMINOPHEN [Concomitant]
     Active Substance: ACETAMINOPHEN\OXYCODONE HYDROCHLORIDE
  10. OLANZAPINE. [Concomitant]
     Active Substance: OLANZAPINE
  11. ONDANSETRON [Concomitant]
     Active Substance: ONDANSETRON
  12. OLANZAPINE. [Concomitant]
     Active Substance: OLANZAPINE
  13. GABAPENTIN. [Concomitant]
     Active Substance: GABAPENTIN
  14. PERCOCET [Concomitant]
     Active Substance: ACETAMINOPHEN\OXYCODONE HYDROCHLORIDE
     Dosage: ?          OTHER FREQUENCY:Q6W;?
     Route: 058
  15. LACTULOSE SOL [Concomitant]
  16. ONDANSETRON [Concomitant]
     Active Substance: ONDANSETRON
  17. PERCOCET [Concomitant]
     Active Substance: ACETAMINOPHEN\OXYCODONE HYDROCHLORIDE

REACTIONS (1)
  - Neoplasm malignant [None]
